FAERS Safety Report 11380838 (Version 1)
Quarter: 2015Q3

REPORT INFORMATION
  Report Type: Spontaneous
  Country: US (occurrence: US)
  Receive Date: 20150814
  Receipt Date: 20150814
  Transmission Date: 20151125
  Serious: No
  Sender: FDA-Public Use
  Company Number: US-JNJFOC-20150801656

PATIENT
  Age: 65 Year
  Sex: Female

DRUGS (6)
  1. CEFTIN [Concomitant]
     Active Substance: CEFUROXIME AXETIL
     Indication: SINUSITIS
     Dosage: USED 5 DAYS
     Route: 065
  2. GAS-X [Concomitant]
     Active Substance: DIMETHICONE
     Indication: FLATULENCE
     Dosage: 1 AS NEEDED ??USING SINCE YEARS
     Route: 065
  3. PEPCID AC MAXIMUM STRENGTH [Suspect]
     Active Substance: FAMOTIDINE
     Route: 048
  4. PEPCID AC MAXIMUM STRENGTH [Suspect]
     Active Substance: FAMOTIDINE
     Indication: GASTRIC PH INCREASED
     Dosage: IN THE MORNING BEFORE BREAKFAST, 1 AROUND MID AFTERNOON AND THEN 1 BEFORE BED.
     Route: 048
  5. PROPANOL [Concomitant]
     Active Substance: PROPRANOLOL HYDROCHLORIDE
     Indication: HEART RATE IRREGULAR
     Dosage: USING SINCE YEARS
     Route: 065
  6. TUMS [Concomitant]
     Active Substance: CALCIUM CARBONATE
     Indication: ANTACID THERAPY
     Dosage: 1-2 AS NEEDED USING SINCE YEARS
     Route: 065

REACTIONS (2)
  - Abdominal pain [Not Recovered/Not Resolved]
  - Inappropriate schedule of drug administration [Unknown]
